FAERS Safety Report 9346341 (Version 3)
Quarter: 2014Q1

REPORT INFORMATION
  Report Type: Spontaneous
  Country: US (occurrence: US)
  Receive Date: 20130613
  Receipt Date: 20140321
  Transmission Date: 20141002
  Serious: Yes (Hospitalization)
  Sender: FDA-Public Use
  Company Number: US-B.I. PHARMACEUTICALS,INC./RIDGEFIELD-2011-BP-04802BP

PATIENT
  Sex: Female
  Weight: 43.54 kg

DRUGS (12)
  1. PRADAXA [Suspect]
     Indication: CEREBROVASCULAR ACCIDENT PROPHYLAXIS
     Dosage: 300 MG
     Route: 065
     Dates: start: 20101229, end: 20110713
  2. PRADAXA [Suspect]
     Indication: THROMBOSIS PROPHYLAXIS
  3. PRADAXA [Suspect]
     Indication: ATRIAL FIBRILLATION
  4. PREDNISONE [Concomitant]
     Dosage: 40 MG
     Route: 065
     Dates: start: 2010
  5. LEVOTHYROXINE [Concomitant]
     Route: 065
     Dates: start: 2010
  6. AZITHROMYCIN [Concomitant]
     Route: 065
  7. DILTIAZEM [Concomitant]
     Dosage: 120 MG
     Route: 065
  8. PERCOCET [Concomitant]
     Route: 065
  9. ASPIRIN [Concomitant]
     Route: 065
  10. XANAX [Concomitant]
     Route: 065
  11. NEXIUM [Concomitant]
     Route: 065
  12. BENADRYL [Concomitant]
     Route: 065

REACTIONS (3)
  - Diverticulum intestinal haemorrhagic [Unknown]
  - Haemorrhagic anaemia [Unknown]
  - Abdominal pain [Unknown]
